FAERS Safety Report 8889774 (Version 2)
Quarter: 2012Q4

REPORT INFORMATION
  Report Type: 
  Country: US (occurrence: US)
  Receive Date: 20121107
  Receipt Date: 20121130
  Transmission Date: 20130627
  Serious: Yes (Hospitalization, Other)
  Sender: FDA-Public Use
  Company Number: US-SANOFI-AVENTIS-2012SA080584

PATIENT
  Age: 80 Year
  Sex: Male
  Weight: 70 kg

DRUGS (6)
  1. PLAVIX [Suspect]
     Indication: STROKE
     Route: 048
     Dates: start: 20120505, end: 20120720
  2. METOPROLOL [Concomitant]
  3. LISINOPRIL [Concomitant]
  4. PRAVACHOL [Concomitant]
  5. ALLOPURINOL [Concomitant]
  6. FAMOTIDINE [Concomitant]

REACTIONS (10)
  - Cellulitis [Recovered/Resolved]
  - Oedema peripheral [Unknown]
  - Skin ulcer [Recovered/Resolved]
  - Haemorrhage [Unknown]
  - Rash macular [Recovered/Resolved]
  - Ill-defined disorder [Unknown]
  - Ill-defined disorder [Unknown]
  - Abscess limb [Recovered/Resolved]
  - Fall [Unknown]
  - Fracture [Unknown]
